FAERS Safety Report 5397885-1 (Version None)
Quarter: 2007Q3

REPORT INFORMATION
  Report Type: 
  Country: None (occurrence: None)
  Receive Date: 20070726
  Receipt Date: 20070719
  Transmission Date: 20080115
  Serious: Yes (Other)
  Sender: FDA-Public Use
  Company Number: BE-MERCK-0705BEL00042

PATIENT
  Age: 87 Year
  Sex: Female
  Weight: 67 kg

DRUGS (4)
  1. HYZAAR [Suspect]
     Indication: HYPERTENSION
     Route: 048
  2. DIURETIC (UNSPECIFIED) [Concomitant]
     Indication: HYPERTENSION
     Route: 048
  3. [THERAPY UNSPECIFIED] [Concomitant]
     Indication: HYPERTENSION
     Route: 048
  4. [THERAPY UNSPECIFIED] [Concomitant]
     Route: 065

REACTIONS (1)
  - CARDIAC FAILURE CONGESTIVE [None]
